FAERS Safety Report 4862818-0 (Version None)
Quarter: 2005Q4

REPORT INFORMATION
  Report Type: 
  Country: None (occurrence: None)
  Receive Date: 20051219
  Receipt Date: 20051209
  Transmission Date: 20060501
  Serious: Yes (Other)
  Sender: FDA-Public Use
  Company Number: 2005166313

PATIENT
  Age: 87 Year
  Sex: Female
  Weight: 48.5349 kg

DRUGS (1)
  1. UNISOM [Suspect]
     Dosage: 1/2 OF A TABLET ONCE, ORAL
     Route: 048
     Dates: start: 20051208, end: 20051208

REACTIONS (1)
  - LOSS OF CONSCIOUSNESS [None]
